FAERS Safety Report 18540107 (Version 1)
Quarter: 2020Q4

REPORT INFORMATION
  Report Type: Report from Study
  Country: US (occurrence: US)
  Receive Date: 20201124
  Receipt Date: 20201124
  Transmission Date: 20210114
  Serious: Yes (Other)
  Sender: FDA-Public Use
  Company Number: US-SUN PHARMACEUTICAL INDUSTRIES LTD-2020R1-268663

PATIENT
  Sex: Male

DRUGS (7)
  1. ETOPOSIDE. [Suspect]
     Active Substance: ETOPOSIDE
     Indication: DESMOPLASTIC SMALL ROUND CELL TUMOUR
     Dosage: NINE NAJ CYCLES
     Route: 065
  2. IFOSFAMIDE. [Suspect]
     Active Substance: IFOSFAMIDE
     Indication: DESMOPLASTIC SMALL ROUND CELL TUMOUR
     Dosage: NINE NAJ CYCLES
     Route: 065
  3. DOXORUBICIN [Suspect]
     Active Substance: DOXORUBICIN
     Indication: DESMOPLASTIC SMALL ROUND CELL TUMOUR
     Dosage: NINE NAJ CYCLES
     Route: 065
  4. TEMOZOLOMIDE. [Suspect]
     Active Substance: TEMOZOLOMIDE
     Indication: DESMOPLASTIC SMALL ROUND CELL TUMOUR
     Dosage: NINE NAJ CYCLES
     Route: 065
  5. IRINOTECAN [Suspect]
     Active Substance: IRINOTECAN
     Indication: DESMOPLASTIC SMALL ROUND CELL TUMOUR
     Dosage: NINE NAJ CYCLESU
     Route: 065
  6. VINCRISTINE [Suspect]
     Active Substance: VINCRISTINE
     Indication: DESMOPLASTIC SMALL ROUND CELL TUMOUR
     Dosage: NINE NAJ CYCLES
     Route: 065
  7. CYCLOPHOSPHAMIDE. [Suspect]
     Active Substance: CYCLOPHOSPHAMIDE
     Indication: DESMOPLASTIC SMALL ROUND CELL TUMOUR
     Dosage: NINE NAJ CYCLES
     Route: 065

REACTIONS (11)
  - Intussusception [Unknown]
  - Ileus [Unknown]
  - Constipation [Unknown]
  - Small intestinal obstruction [Unknown]
  - Diarrhoea [Unknown]
  - Vomiting [Unknown]
  - Postoperative wound complication [Unknown]
  - Nausea [Unknown]
  - Therapy partial responder [Unknown]
  - Clostridium difficile infection [Unknown]
  - Myelosuppression [Unknown]
